FAERS Safety Report 5754407-0 (Version None)
Quarter: 2008Q2

REPORT INFORMATION
  Report Type: 
  Country: None (occurrence: None)
  Receive Date: 20080530
  Receipt Date: 20080521
  Transmission Date: 20081010
  Serious: Yes (Death, Hospitalization, Other)
  Sender: FDA-Public Use
  Company Number: SV-ABBOTT-08P-050-0451112-00

PATIENT
  Age: 22 Year
  Sex: Female

DRUGS (4)
  1. HUMIRA [Suspect]
     Indication: CROHN'S DISEASE
     Route: 058
     Dates: start: 20080409, end: 20080430
  2. METHOTREXATE [Concomitant]
     Indication: CROHN'S DISEASE
     Route: 048
     Dates: start: 20080409, end: 20080430
  3. METHYLPREDNISOLONE [Concomitant]
     Indication: FACE OEDEMA
     Route: 048
  4. COLCHICINE [Concomitant]
     Indication: APHTHOUS STOMATITIS

REACTIONS (8)
  - APHTHOUS STOMATITIS [None]
  - FACE OEDEMA [None]
  - FACIAL PALSY [None]
  - HAEMATOMA [None]
  - LARYNGEAL OEDEMA [None]
  - LIP OEDEMA [None]
  - TONGUE DISORDER [None]
  - TONGUE OEDEMA [None]
